FAERS Safety Report 8518028-9 (Version None)
Quarter: 2012Q3

REPORT INFORMATION
  Report Type: 
  Country: None (occurrence: None)
  Receive Date: 20120718
  Receipt Date: 20110809
  Transmission Date: 20120928
  Serious: No
  Sender: FDA-Public Use
  Company Number: US-BRISTOL-MYERS SQUIBB COMPANY-15958119

PATIENT
  Sex: Female

DRUGS (1)
  1. COUMADIN [Suspect]
     Dosage: STARTED ABOUT 2 YRS AGO

REACTIONS (2)
  - ABNORMAL CLOTTING FACTOR [None]
  - PROTHROMBIN TIME RATIO INCREASED [None]
